FAERS Safety Report 10416216 (Version 1)
Quarter: 2014Q3

REPORT INFORMATION
  Report Type: Spontaneous
  Country: US (occurrence: None)
  Receive Date: 20140827
  Receipt Date: 20140827
  Transmission Date: 20150326
  Serious: Yes (Disabling)
  Sender: FDA-Public Use
  Company Number: None

PATIENT
  Sex: Male
  Weight: 122.47 kg

DRUGS (8)
  1. VICOPROFEN [Suspect]
     Active Substance: HYDROCODONE BITARTRATE\IBUPROFEN
     Indication: INTERVERTEBRAL DISC PROTRUSION
     Dosage: 75/200, TID, ORAL?
     Route: 048
     Dates: start: 20140610
  2. HYZAAR [Concomitant]
     Active Substance: HYDROCHLOROTHIAZIDE\LOSARTAN POTASSIUM
  3. LIPITOR [Concomitant]
     Active Substance: ATORVASTATIN CALCIUM
  4. SKELAXIN [Concomitant]
     Active Substance: METAXALONE
  5. ASA [Concomitant]
     Active Substance: ASPIRIN
  6. NOREPINEPHRINE [Suspect]
     Active Substance: NOREPINEPHRINE\NOREPINEPHRINE BITARTRATE
     Dosage: 5/325, TID, ORAL
     Route: 048
  7. VICOPROFEN [Suspect]
     Active Substance: HYDROCODONE BITARTRATE\IBUPROFEN
     Indication: SPINAL OSTEOARTHRITIS
     Dosage: 75/200, TID, ORAL?
     Route: 048
     Dates: start: 20140610
  8. PERCOCET [Suspect]
     Active Substance: ACETAMINOPHEN\OXYCODONE HYDROCHLORIDE
     Route: 048
     Dates: start: 20140408

REACTIONS (3)
  - Somnolence [None]
  - Drug effect decreased [None]
  - Nausea [None]
